FAERS Safety Report 8445908-5 (Version None)
Quarter: 2012Q2

REPORT INFORMATION
  Report Type: 
  Country: None (occurrence: None)
  Receive Date: 20120618
  Receipt Date: 20120608
  Transmission Date: 20120825
  Serious: Yes (Hospitalization, Other)
  Sender: FDA-Public Use
  Company Number: US-ABBOTT-12P-163-0926792-00

PATIENT
  Age: 46 Year
  Sex: Female

DRUGS (3)
  1. HUMIRA [Suspect]
     Indication: CROHN'S DISEASE
     Dates: start: 20120319, end: 20120319
  2. HUMIRA [Suspect]
     Dates: end: 20120523
  3. COLACE [Concomitant]
     Indication: CONSTIPATION PROPHYLAXIS
     Route: 048

REACTIONS (4)
  - INTESTINAL OBSTRUCTION [None]
  - WHITE BLOOD CELL COUNT DECREASED [None]
  - LABORATORY TEST ABNORMAL [None]
  - BLOOD CREATININE INCREASED [None]
